FAERS Safety Report 8785831 (Version 1)
Quarter: 2012Q4

REPORT INFORMATION
  Report Type: 
  Country: US (occurrence: US)
  Receive Date: 20120914
  Receipt Date: 20120914
  Transmission Date: 20130627
  Serious: No
  Sender: FDA-Public Use
  Company Number: US-MYLANLABS-2012S1016851

PATIENT
  Age: 60 Year
  Sex: Male

DRUGS (1)
  1. CLOPIDOGREL TABLETS USP [Suspect]
     Route: 048
     Dates: start: 201207

REACTIONS (2)
  - Muscular weakness [Not Recovered/Not Resolved]
  - Musculoskeletal stiffness [Not Recovered/Not Resolved]
